FAERS Safety Report 4691978-X (Version None)
Quarter: 2005Q2

REPORT INFORMATION
  Report Type: 
  Country: None (occurrence: None)
  Receive Date: 20050616
  Receipt Date: 20050616
  Transmission Date: 20051028
  Serious: Yes (Death)
  Sender: FDA-Public Use
  Company Number: None

PATIENT
  Age: 65 Year
  Sex: Male

DRUGS (1)
  1. XIGRIS [Suspect]
     Indication: SEPSIS
     Dosage: 63 MG    Q 24 HOURS  INTRAVENOU
     Route: 042
     Dates: start: 20041129, end: 20041202

REACTIONS (4)
  - EPISTAXIS [None]
  - HAEMORRHAGE [None]
  - HYPOTENSION [None]
  - MOUTH HAEMORRHAGE [None]
